FAERS Safety Report 24700971 (Version 2)
Quarter: 2024Q4

REPORT INFORMATION
  Report Type: Spontaneous
  Country: PT (occurrence: PT)
  Receive Date: 20241205
  Receipt Date: 20241218
  Transmission Date: 20250115
  Serious: Yes (Death, Life-Threatening, Hospitalization, Other)
  Sender: B BRAUN
  Company Number: PT-B.Braun Medical Inc.-2166537

PATIENT
  Age: 70 Year
  Sex: Female

DRUGS (11)
  1. ACETAMINOPHEN [Suspect]
     Active Substance: ACETAMINOPHEN
     Indication: Pyrexia
  2. CLOMIPRAMINE [Suspect]
     Active Substance: CLOMIPRAMINE
  3. DANTROLENE. [Concomitant]
     Active Substance: DANTROLENE SODIUM
  4. VALPROIC ACID [Suspect]
     Active Substance: VALPROIC ACID
  5. RISPERIDONE [Suspect]
     Active Substance: RISPERIDONE
  6. PIPERACILLIN SODIUM\TAZOBACTAM SODIUM [Suspect]
     Active Substance: PIPERACILLIN SODIUM\TAZOBACTAM SODIUM
  7. ACETAMINOPHEN [Suspect]
     Active Substance: ACETAMINOPHEN
  8. NAPROXEN [Suspect]
     Active Substance: NAPROXEN
  9. METAMIZOLE [Suspect]
     Active Substance: METAMIZOLE
  10. LYSINE ACETYLSALICYLATE [Suspect]
     Active Substance: ASPIRIN DL-LYSINE
  11. COTRIMOXAZOLE [Suspect]
     Active Substance: SULFAMETHOXAZOLE\TRIMETHOPRIM

REACTIONS (11)
  - Neuroleptic malignant syndrome [Fatal]
  - Labile blood pressure [Fatal]
  - Hyperkalaemia [Fatal]
  - Tachycardia [Fatal]
  - Fatigue [Fatal]
  - Haemodynamic instability [Fatal]
  - Tachypnoea [Fatal]
  - Hypertension [Fatal]
  - Drug ineffective [Fatal]
  - Pyrexia [Fatal]
  - Glomerular filtration rate abnormal [Fatal]
